FAERS Safety Report 12328887 (Version 1)
Quarter: 2016Q2

REPORT INFORMATION
  Report Type: Spontaneous
  Country: US (occurrence: US)
  Receive Date: 20160503
  Receipt Date: 20160503
  Transmission Date: 20160815
  Serious: No
  Sender: FDA-Public Use
  Company Number: US-JUBILANT HOLLISTERSTIER LLC-1051346

PATIENT
  Age: 42 Year
  Sex: Male

DRUGS (2)
  1. MOLDS, RUSTS AND SMUTS, CANDIDA ALBICANS [Suspect]
     Active Substance: CANDIDA ALBICANS
     Indication: OFF LABEL USE
     Dates: start: 20160126, end: 20160126
  2. STERILE DILUENT FOR ALLERGENIC EXTRACT (ALBUMIN (HUMAN)\PHENOL) [Interacting]
     Active Substance: ALBUMIN HUMAN\PHENOL
     Dates: start: 20160126, end: 20160126

REACTIONS (6)
  - Pyrexia [None]
  - Chills [None]
  - Arthralgia [None]
  - Myalgia [None]
  - Pain in extremity [None]
  - Off label use [None]

NARRATIVE: CASE EVENT DATE: 20160126
